FAERS Safety Report 9084369 (Version 1)
Quarter: 2013Q1

REPORT INFORMATION
  Report Type: Report from Study
  Country: US (occurrence: US)
  Receive Date: 20130131
  Receipt Date: 20130131
  Transmission Date: 20140127
  Serious: No
  Sender: FDA-Public Use
  Company Number: US-ABBOTT-12P-163-0996214-00

PATIENT
  Age: 80 Year
  Sex: Female

DRUGS (16)
  1. HUMIRA [Suspect]
     Indication: SCLERODERMA
     Dates: start: 20120922
  2. ALBUTEROL [Concomitant]
     Indication: ASTHMA
     Route: 055
  3. LOFIBRA [Concomitant]
     Indication: BLOOD CHOLESTEROL
  4. LOVAZA [Concomitant]
     Indication: BLOOD CHOLESTEROL
  5. LOSARTAN [Concomitant]
     Indication: HYPERTENSION
  6. TRIAMTERENE/HCTZ [Concomitant]
     Indication: HYPERTENSION
     Dosage: 37.5/25 MG HALF TAB DAILY
  7. TRIAMTERENE/HCTZ [Concomitant]
     Indication: DIURETIC THERAPY
  8. FOSAMAX [Concomitant]
     Indication: PROPHYLAXIS
  9. CALCIUM [Concomitant]
     Indication: PRODUCT USED FOR UNKNOWN INDICATION
  10. ASPIRIN [Concomitant]
     Indication: PRODUCT USED FOR UNKNOWN INDICATION
  11. OCUVITE [Concomitant]
     Indication: PRODUCT USED FOR UNKNOWN INDICATION
  12. SYSTANE [Concomitant]
     Indication: PRODUCT USED FOR UNKNOWN INDICATION
     Dosage: EACH EYE DAILY
  13. FOLIC ACID [Concomitant]
     Indication: PRODUCT USED FOR UNKNOWN INDICATION
  14. METHOTREXATE [Concomitant]
     Indication: PRODUCT USED FOR UNKNOWN INDICATION
     Dosage: 8 TABS 1 TIME A WEEK
  15. PREDNISONE [Concomitant]
     Indication: PRODUCT USED FOR UNKNOWN INDICATION
     Dosage: 1 1/2 TAB DAILY
  16. MECLIZINE [Concomitant]
     Indication: DIZZINESS

REACTIONS (6)
  - Blood glucose increased [Not Recovered/Not Resolved]
  - Oedema peripheral [Not Recovered/Not Resolved]
  - Skin tightness [Not Recovered/Not Resolved]
  - Pain [Not Recovered/Not Resolved]
  - Fatigue [Unknown]
  - Pain [Unknown]
